FAERS Safety Report 5272971-5 (Version None)
Quarter: 2007Q1

REPORT INFORMATION
  Report Type: 
  Country: None (occurrence: None)
  Receive Date: 20070322
  Receipt Date: 20070311
  Transmission Date: 20070707
  Serious: Yes (Other)
  Sender: FDA-Public Use
  Company Number: US-PFIZER INC-2007019651

PATIENT
  Age: 55 Year
  Sex: Male

DRUGS (1)
  1. VIAGRA [Suspect]

REACTIONS (1)
  - TUNNEL VISION [None]
